FAERS Safety Report 9367686 (Version 1)
Quarter: 2013Q2

REPORT INFORMATION
  Report Type: Spontaneous
  Country: FR (occurrence: FR)
  Receive Date: 20130625
  Receipt Date: 20130625
  Transmission Date: 20140414
  Serious: Yes (Other)
  Sender: FDA-Public Use
  Company Number: FR-NOVOPROD-378917

PATIENT
  Age: 73 Year
  Sex: Female
  Weight: 59 kg

DRUGS (12)
  1. VICTOZA [Suspect]
     Indication: TYPE 2 DIABETES MELLITUS
     Dosage: 1.2 MG, QD
     Route: 058
     Dates: start: 201209, end: 201304
  2. LANTUS [Concomitant]
     Indication: TYPE 2 DIABETES MELLITUS
     Dosage: UNK
     Route: 058
  3. GLIMEPIRIDE [Concomitant]
     Indication: TYPE 2 DIABETES MELLITUS
     Dosage: 6 MG, QD
  4. METFORMIN [Concomitant]
     Indication: TYPE 2 DIABETES MELLITUS
     Route: 048
  5. VALSARTAN [Concomitant]
     Indication: HYPERTENSION
     Dosage: 100 MG, QD
     Route: 048
  6. LERCANIDIPINE [Concomitant]
     Indication: HYPERTENSION
     Dosage: 20 MG, QD
     Route: 048
  7. ATENOLOL [Concomitant]
     Indication: HYPERTENSION
     Dosage: 75 MG, QD
     Route: 048
  8. INEGY [Concomitant]
     Indication: DYSLIPIDAEMIA
     Route: 048
  9. CLOPIDOGREL [Concomitant]
     Dosage: 75 MG, QD
     Route: 048
  10. PIASCLEDINE                        /00809501/ [Concomitant]
     Dosage: 300 MG, QD
     Route: 048
  11. RABEPRAZOLE [Concomitant]
     Dosage: 20 MG, QD
     Route: 048
  12. TIMOFEROL [Concomitant]
     Dosage: 300 MG, QD
     Route: 048

REACTIONS (1)
  - Decreased appetite [Recovering/Resolving]
